FAERS Safety Report 14324406 (Version 1)
Quarter: 2017Q4

REPORT INFORMATION
  Report Type: Spontaneous
  Country: US (occurrence: US)
  Receive Date: 20171226
  Receipt Date: 20171226
  Transmission Date: 20180321
  Serious: Yes (Other)
  Sender: FDA-Public Use
  Company Number: US-AUROBINDO-AUR-APL-2017-47122

PATIENT
  Age: 33 Year
  Sex: Female

DRUGS (9)
  1. ROPINIROLE. [Suspect]
     Active Substance: ROPINIROLE
     Indication: GAIT DISTURBANCE
     Dosage: ()
  2. CARBIDOPA AND LEVODOPA [Suspect]
     Active Substance: CARBIDOPA\LEVODOPA
     Dosage: ()
  3. ENTACAPON [Suspect]
     Active Substance: ENTACAPONE
     Indication: GAIT DISTURBANCE
     Dosage: ()
  4. ENTACAPON [Suspect]
     Active Substance: ENTACAPONE
     Indication: PARKINSONISM
     Dosage: ()
  5. ENTACAPON [Suspect]
     Active Substance: ENTACAPONE
     Dosage: ()
  6. ROPINIROLE. [Suspect]
     Active Substance: ROPINIROLE
     Indication: PARKINSONISM
     Dosage: ()
  7. CARBIDOPA AND LEVODOPA [Suspect]
     Active Substance: CARBIDOPA\LEVODOPA
     Indication: PARKINSONISM
     Dosage: ()
  8. CARBIDOPA AND LEVODOPA [Suspect]
     Active Substance: CARBIDOPA\LEVODOPA
     Indication: GAIT DISTURBANCE
     Dosage: ()
  9. ROPINIROLE. [Suspect]
     Active Substance: ROPINIROLE
     Indication: FALL
     Dosage: ()

REACTIONS (3)
  - Confusional state [Unknown]
  - Somnolence [Unknown]
  - Drug ineffective [Unknown]
